FAERS Safety Report 23749931 (Version 1)
Quarter: 2024Q2

REPORT INFORMATION
  Report Type: Spontaneous
  Country: GB (occurrence: GB)
  Receive Date: 20240417
  Receipt Date: 20240417
  Transmission Date: 20240715
  Serious: Yes (Hospitalization)
  Sender: FDA-Public Use
  Company Number: None

PATIENT
  Age: 64 Year
  Sex: Male

DRUGS (10)
  1. UPADACITINIB [Suspect]
     Active Substance: UPADACITINIB
     Indication: Inflammatory bowel disease
     Dosage: LAST ADMIN DATE WAS 2024
     Route: 048
     Dates: start: 202401
  2. TADALAFIL [Concomitant]
     Active Substance: TADALAFIL
     Indication: Product used for unknown indication
     Dosage: AS DIRECTED - NOT REQUIRED
  3. CODEINE [Concomitant]
     Active Substance: CODEINE
     Indication: Product used for unknown indication
     Dosage: TIME INTERVAL: 0.5 AS NECESSARY: ONE TO BE TAKEN FOUR TIMES A DAY WHEN REQUIRED - TAKES MOST NIGH...
  4. AMLODIPINE [Concomitant]
     Active Substance: AMLODIPINE BESYLATE
     Indication: Product used for unknown indication
  5. OMEPRAZOLE [Concomitant]
     Active Substance: OMEPRAZOLE
     Indication: Product used for unknown indication
     Dosage: TIME INTERVAL: AS NECESSARY: TWO TO BE TAKEN TWICE A DAY - TAKES 1 PRN
  6. PREDNISOLONE [Concomitant]
     Active Substance: PREDNISOLONE
     Indication: Product used for unknown indication
     Dosage: FOR 2 WEEKS AS DIRECTED BY HOSPITAL. STARTED DOSING HIMSELF AS HE THOUGHT HE NEEDED. NOW ON IVHC
     Dates: start: 20231120
  7. ALENDRONIC ACID [Concomitant]
     Active Substance: ALENDRONIC ACID
     Indication: Product used for unknown indication
     Dosage: TO BE TAKEN ON THE SAME DAY EACH WEEK - NO SET?DAY
  8. ALLOPURINOL [Concomitant]
     Active Substance: ALLOPURINOL
     Indication: Product used for unknown indication
  9. LOPERAMIDE [Concomitant]
     Active Substance: LOPERAMIDE
     Indication: Product used for unknown indication
     Dosage: TIME INTERVAL: AS NECESSARY: ONE OR TWO TO BE TAKEN THREE TIMES A DAY WHEN REQUIRED - 9 - 12 PER DAY
  10. HYDROCORTISONE [Concomitant]
     Active Substance: HYDROCORTISONE
     Indication: Product used for unknown indication

REACTIONS (6)
  - Drug ineffective [Unknown]
  - Renal function test abnormal [Recovered/Resolved]
  - Frequent bowel movements [Recovered/Resolved]
  - Inflammatory marker increased [Recovered/Resolved]
  - Abdominal pain [Recovered/Resolved]
  - Acute kidney injury [Recovered/Resolved]

NARRATIVE: CASE EVENT DATE: 20240101
